FAERS Safety Report 4751111-2 (Version None)
Quarter: 2005Q3

REPORT INFORMATION
  Report Type: 
  Country: None (occurrence: None)
  Receive Date: 20050822
  Receipt Date: 20050809
  Transmission Date: 20060218
  Serious: Yes (Hospitalization, Other)
  Sender: FDA-Public Use
  Company Number: 2005113524

PATIENT
  Sex: Female
  Weight: 41.7309 kg

DRUGS (5)
  1. DILANTIN [Suspect]
     Indication: GRAND MAL CONVULSION
     Dosage: SEE IMAGE
     Route: 048
  2. NEURONTIN [Suspect]
     Indication: COMPLEX PARTIAL SEIZURES
     Dosage: 300 MG (300 MG, 1 IN 1 D), ORAL
     Route: 048
  3. GABAPENTIN [Suspect]
     Indication: COMPLEX PARTIAL SEIZURES
     Dosage: 600 MG (300 MG, 2 IN 1 D), ORAL
     Route: 048
  4. PHENOBARBITAL TAB [Concomitant]
  5. EXCEDRIN /BRA/ (CAFFEINE, PARACETAMOL) [Concomitant]

REACTIONS (11)
  - AURA [None]
  - CALCINOSIS [None]
  - COMPLEX PARTIAL SEIZURES [None]
  - DRUG INEFFECTIVE [None]
  - GRAND MAL CONVULSION [None]
  - HEARING IMPAIRED [None]
  - HEPATIC CYST [None]
  - HEPATOTOXICITY [None]
  - NERVOUS SYSTEM DISORDER [None]
  - PRURITUS [None]
  - RECTAL HAEMORRHAGE [None]
